FAERS Safety Report 6805741-4 (Version None)
Quarter: 2010Q2

REPORT INFORMATION
  Report Type: 
  Country: None (occurrence: None)
  Receive Date: 20100628
  Receipt Date: 20080331
  Transmission Date: 20101027
  Serious: Yes (Other)
  Sender: FDA-Public Use
  Company Number: US-PFIZER INC-2007092650

PATIENT
  Sex: Male

DRUGS (3)
  1. CADUET [Suspect]
     Indication: BLOOD CHOLESTEROL INCREASED
     Dates: start: 20060101, end: 20080318
  2. CADUET [Suspect]
     Indication: HYPERTENSION
  3. ZOLOFT [Concomitant]

REACTIONS (1)
  - GINGIVAL HYPERTROPHY [None]
